FAERS Safety Report 21536153 (Version 1)
Quarter: 2022Q4

REPORT INFORMATION
  Report Type: Spontaneous
  Country: US (occurrence: None)
  Receive Date: 20221031
  Receipt Date: 20221031
  Transmission Date: 20230113
  Serious: No
  Sender: FDA-Public Use
  Company Number: None

PATIENT
  Age: 90 Year
  Sex: Female

DRUGS (1)
  1. ENBREL [Suspect]
     Active Substance: ETANERCEPT
     Indication: Therapy interrupted
     Dosage: FREQUENCY : WEEKLY;?
     Route: 058
     Dates: start: 201709

REACTIONS (3)
  - Blood pressure abnormal [None]
  - Blood potassium abnormal [None]
  - Asthenia [None]
